FAERS Safety Report 17329851 (Version 1)
Quarter: 2020Q1

REPORT INFORMATION
  Report Type: Spontaneous
  Country: US (occurrence: US)
  Receive Date: 20200127
  Receipt Date: 20200127
  Transmission Date: 20200409
  Serious: Yes (Death)
  Sender: FDA-Public Use
  Company Number: US-MALLINCKRODT-T202000366

PATIENT

DRUGS (1)
  1. UVADEX [Suspect]
     Active Substance: METHOXSALEN
     Indication: GRAFT VERSUS HOST DISEASE
     Dosage: UNK, EXTRACORPOREAL
     Route: 050

REACTIONS (7)
  - Multiple organ dysfunction syndrome [Fatal]
  - Hypotension [Unknown]
  - Graft versus host disease [Fatal]
  - Recurrent cancer [Fatal]
  - Adverse event [Fatal]
  - Product use in unapproved indication [Unknown]
  - Infection [Fatal]
